FAERS Safety Report 25637452 (Version 1)
Quarter: 2025Q3

REPORT INFORMATION
  Report Type: Spontaneous
  Country: US (occurrence: US)
  Receive Date: 20250804
  Receipt Date: 20250804
  Transmission Date: 20251020
  Serious: No
  Sender: ALEXION PHARMACEUTICALS
  Company Number: US-AstraZeneca-CH-00923107AP

PATIENT
  Sex: Male

DRUGS (1)
  1. BREZTRI [Suspect]
     Active Substance: BUDESONIDE\FORMOTEROL\GLYCOPYRROLATE
     Route: 065

REACTIONS (8)
  - Product cleaning inadequate [Unknown]
  - Device physical property issue [Unknown]
  - Drug delivery system issue [Unknown]
  - Product delivery mechanism issue [Unknown]
  - Dyspnoea [Unknown]
  - Drug delivery system issue [Unknown]
  - Unevaluable event [Unknown]
  - Device defective [Unknown]
